FAERS Safety Report 23210704 (Version 1)
Quarter: 2023Q4

REPORT INFORMATION
  Report Type: Spontaneous
  Country: CN (occurrence: None)
  Receive Date: 20231121
  Receipt Date: 20231121
  Transmission Date: 20240110
  Serious: Yes (Hospitalization)
  Sender: FDA-Public Use
  Company Number: CN-ROCHE-3457551

PATIENT
  Age: 48 Year
  Sex: Female
  Weight: 63 kg

DRUGS (2)
  1. PERJETA [Suspect]
     Active Substance: PERTUZUMAB
     Indication: HER2 positive breast cancer
     Route: 041
     Dates: start: 20231021, end: 20231021
  2. PERJETA [Suspect]
     Active Substance: PERTUZUMAB
     Indication: Breast cancer

REACTIONS (1)
  - Palpitations [Recovering/Resolving]

NARRATIVE: CASE EVENT DATE: 20231021
